FAERS Safety Report 19172949 (Version 1)
Quarter: 2021Q2

REPORT INFORMATION
  Report Type: Spontaneous
  Country: US (occurrence: US)
  Receive Date: 20210422
  Receipt Date: 20210422
  Transmission Date: 20210717
  Serious: Yes (Hospitalization)
  Sender: FDA-Public Use
  Company Number: None

PATIENT
  Age: 76 Year
  Sex: Male
  Weight: 66.4 kg

DRUGS (5)
  1. ERTAPENEM 1G IV INJECTION [Concomitant]
     Dates: start: 20210124, end: 20210218
  2. DAPTOMYCIN. [Suspect]
     Active Substance: DAPTOMYCIN
     Indication: OSTEOMYELITIS
     Dates: start: 20210124, end: 20210216
  3. ACETAMINOPHEN 650MG PO QHS [Concomitant]
  4. LISINOPRIL?HYDROCHLOROTHIAZIDE 20MG?25MG TABLET [Concomitant]
  5. DAPTOMYCIN. [Suspect]
     Active Substance: DAPTOMYCIN
     Indication: STAPHYLOCOCCAL INFECTION
     Dates: start: 20210124, end: 20210216

REACTIONS (1)
  - Eosinophilic pneumonia [None]

NARRATIVE: CASE EVENT DATE: 20210216
